FAERS Safety Report 17362974 (Version 4)
Quarter: 2024Q1

REPORT INFORMATION
  Report Type: Spontaneous
  Country: US (occurrence: US)
  Receive Date: 20200203
  Receipt Date: 20240101
  Transmission Date: 20240409
  Serious: Yes (Other)
  Sender: FDA-Public Use
  Company Number: US-GILEAD-2020-0448811

PATIENT
  Age: 62 Year
  Sex: Male
  Weight: 59 kg

DRUGS (45)
  1. TRUVADA [Suspect]
     Active Substance: EMTRICITABINE\TENOFOVIR DISOPROXIL FUMARATE
     Indication: HIV infection
     Dosage: UNK
     Route: 048
     Dates: start: 2004, end: 20170213
  2. TRUVADA [Suspect]
     Active Substance: EMTRICITABINE\TENOFOVIR DISOPROXIL FUMARATE
     Dosage: UNK
     Route: 048
     Dates: start: 20120510, end: 20170213
  3. MIRTAZAPINE [Concomitant]
     Active Substance: MIRTAZAPINE
  4. ACETAMINOPHEN [Concomitant]
     Active Substance: ACETAMINOPHEN
  5. ALBUTEROL SULFATE [Concomitant]
     Active Substance: ALBUTEROL SULFATE
  6. AMMONIUM LACTATE [Concomitant]
     Active Substance: AMMONIUM LACTATE
  7. CARAFATE [Concomitant]
     Active Substance: SUCRALFATE
  8. OXYMETAZOLINE HYDROCHLORIDE [Concomitant]
     Active Substance: OXYMETAZOLINE HYDROCHLORIDE
  9. COMBIVENT [Concomitant]
     Active Substance: ALBUTEROL SULFATE\IPRATROPIUM BROMIDE
  10. DARUNAVIR ACCORD [Concomitant]
  11. DESMOPRESSIN [Concomitant]
     Active Substance: DESMOPRESSIN
  12. DILAUDID [Concomitant]
     Active Substance: HYDROMORPHONE HYDROCHLORIDE
  13. DOLUTEGRAVIR [Concomitant]
     Active Substance: DOLUTEGRAVIR
  14. DUONEB [Concomitant]
     Active Substance: ALBUTEROL SULFATE\IPRATROPIUM BROMIDE
  15. HECTOROL [Concomitant]
     Active Substance: DOXERCALCIFEROL
  16. HYDROCORTISONE ACETATE [Concomitant]
     Active Substance: HYDROCORTISONE ACETATE
  17. MIDODRINE [Concomitant]
     Active Substance: MIDODRINE
  18. MIRALAX [Concomitant]
     Active Substance: POLYETHYLENE GLYCOL 3350
  19. NAPROXEN [Concomitant]
     Active Substance: NAPROXEN
  20. OMEPRAZOLE [Concomitant]
     Active Substance: OMEPRAZOLE
  21. LEVOTHYROXINE [Concomitant]
     Active Substance: LEVOTHYROXINE
  22. IPRATROPIUM BR [Concomitant]
  23. ALBUTEROL SULFATE [Concomitant]
     Active Substance: ALBUTEROL SULFATE
  24. EPOETIN ALFA BS [Concomitant]
     Active Substance: ERYTHROPOIETIN
  25. ONDANSETRON [Concomitant]
     Active Substance: ONDANSETRON
  26. OXYCODONE [Concomitant]
     Active Substance: OXYCODONE
  27. PANTOPRAZOLE [Concomitant]
     Active Substance: PANTOPRAZOLE
  28. PREDNISONE [Concomitant]
     Active Substance: PREDNISONE
  29. PRILOSEC [Concomitant]
     Active Substance: OMEPRAZOLE MAGNESIUM
  30. FINASTERIDE [Concomitant]
     Active Substance: FINASTERIDE
  31. FOLIC ACID [Concomitant]
     Active Substance: FOLIC ACID
  32. LIQUACEL [Concomitant]
  33. PROCRIT [Concomitant]
     Active Substance: ERYTHROPOIETIN
  34. OMEPRAZOLE [Concomitant]
     Active Substance: OMEPRAZOLE
  35. RITONAVIR [Concomitant]
     Active Substance: RITONAVIR
  36. SENNA LEAF [Concomitant]
     Active Substance: SENNA LEAF
  37. SUCRALFATE [Concomitant]
     Active Substance: SUCRALFATE
  38. THIAMINE [Concomitant]
     Active Substance: THIAMINE
  39. AMOXICILLIN [Concomitant]
     Active Substance: AMOXICILLIN
  40. TRIMETHOPRIM [Concomitant]
     Active Substance: TRIMETHOPRIM
  41. SULFAMETHOXAZOLE [Concomitant]
     Active Substance: SULFAMETHOXAZOLE
  42. ERYTHROPOIETIN [Concomitant]
     Active Substance: ERYTHROPOIETIN
  43. PYRIDOXINE HYDROCHLORIDE\THIAMINE HYDROCHLORIDE [Concomitant]
     Active Substance: PYRIDOXINE HYDROCHLORIDE\THIAMINE HYDROCHLORIDE
  44. LAXATIVE STOOL SOFTENER WITH SENNA [Concomitant]
  45. NORVIR [Concomitant]
     Active Substance: RITONAVIR

REACTIONS (7)
  - End stage renal disease [Recovered/Resolved]
  - Depression [Not Recovered/Not Resolved]
  - Economic problem [Not Recovered/Not Resolved]
  - Anhedonia [Not Recovered/Not Resolved]
  - Emotional distress [Not Recovered/Not Resolved]
  - Anxiety [Not Recovered/Not Resolved]
  - Pain [Not Recovered/Not Resolved]

NARRATIVE: CASE EVENT DATE: 20161219
